FAERS Safety Report 4313034-2 (Version None)
Quarter: 2004Q1

REPORT INFORMATION
  Report Type: 
  Country: None (occurrence: None)
  Receive Date: 20040304
  Receipt Date: 20040224
  Transmission Date: 20041129
  Serious: Yes (Death, Hospitalization)
  Sender: FDA-Public Use
  Company Number: 163-20785-03120404

PATIENT
  Age: 82 Year
  Sex: Male

DRUGS (2)
  1. THALOMID [Suspect]
     Indication: METASTASES TO LIVER
     Dosage: 200 MG
     Dates: start: 20030714, end: 20030929
  2. THALOMID [Suspect]
     Indication: RENAL CELL CARCINOMA STAGE UNSPECIFIED
     Dosage: 200 MG
     Dates: start: 20030714, end: 20030929

REACTIONS (5)
  - MALIGNANT NEOPLASM PROGRESSION [None]
  - METASTASES TO LIVER [None]
  - RENAL CANCER METASTATIC [None]
  - SOMNOLENCE [None]
  - URETERIC CANCER [None]
